FAERS Safety Report 14816168 (Version 5)
Quarter: 2019Q2

REPORT INFORMATION
  Report Type: Spontaneous
  Country: CA (occurrence: CA)
  Receive Date: 20180426
  Receipt Date: 20190611
  Transmission Date: 20190711
  Serious: Yes (Hospitalization, Other)
  Sender: FDA-Public Use
  Company Number: CA-CELLTRION INC.-2017CA016118

PATIENT

DRUGS (26)
  1. INFLECTRA [Suspect]
     Active Substance: INFLIXIMAB-DYYB
     Dosage: 250 MG, (EVERY 6 WEEKS)
     Route: 042
     Dates: start: 20180831
  2. OMEPRAZOLE. [Concomitant]
     Active Substance: OMEPRAZOLE
     Dosage: 20 MG, DAILY AS NEEDED WITH NAPROXEN
     Route: 048
  3. INFLECTRA [Suspect]
     Active Substance: INFLIXIMAB-DYYB
     Dosage: 300 MG
     Route: 042
     Dates: start: 20180608
  4. SULFASALAZINE. [Concomitant]
     Active Substance: SULFASALAZINE
     Dosage: 1000 MG, 2X/DAY
     Route: 048
     Dates: start: 201702
  5. INFLECTRA [Suspect]
     Active Substance: INFLIXIMAB-DYYB
     Dosage: 300 MG, CYCLIC (EVERY 6 WEEKS)
     Route: 042
     Dates: start: 20171222
  6. INFLECTRA [Suspect]
     Active Substance: INFLIXIMAB-DYYB
     Dosage: 300 MG, CYCLIC (EVERY 8 WEEKS)
     Route: 042
     Dates: start: 20180202
  7. AMITRIPTYLINE [Concomitant]
     Active Substance: AMITRIPTYLINE
     Dosage: 50 MG, AT BEDTIME
     Route: 048
     Dates: start: 2011
  8. NAPROXEN. [Concomitant]
     Active Substance: NAPROXEN
     Indication: ARTHRITIS
     Dosage: 500 MG, BID AS NEEDED FOR FLARE UPS
     Route: 048
  9. INFLECTRA [Suspect]
     Active Substance: INFLIXIMAB-DYYB
     Dosage: 250 MG EVERY 6 WEEKS
     Route: 042
     Dates: start: 20180307, end: 20180413
  10. INFLECTRA [Suspect]
     Active Substance: INFLIXIMAB-DYYB
     Dosage: 250 MG, (EVERY 4 WEEKS)
     Route: 042
     Dates: start: 20180803
  11. INFLECTRA [Suspect]
     Active Substance: INFLIXIMAB-DYYB
     Dosage: 300 MG, EVERY 4 WEEKS
     Route: 042
     Dates: start: 20190528
  12. PREGABALIN. [Concomitant]
     Active Substance: PREGABALIN
     Dosage: 300 MG, 2X/DAY
     Route: 048
     Dates: start: 2013
  13. LEVOTHYROXIN [Concomitant]
     Active Substance: LEVOTHYROXINE
     Dosage: 0.1 MG, 1X/DAY
     Route: 048
     Dates: start: 1990
  14. INFLECTRA [Suspect]
     Active Substance: INFLIXIMAB-DYYB
     Dosage: 300 MG,  (EVERY 4 WEEKS)
     Route: 042
     Dates: start: 20180831
  15. SULFASALAZINE. [Concomitant]
     Active Substance: SULFASALAZINE
     Dosage: 1000 MG, 2X/DAY
     Route: 048
     Dates: start: 2014, end: 2016
  16. INFLECTRA [Suspect]
     Active Substance: INFLIXIMAB-DYYB
     Dosage: 250 MG, CYCLIC (EVERY 4 WEEKS)
     Route: 042
  17. VITAMIN B12 [Concomitant]
     Active Substance: CYANOCOBALAMIN
     Dosage: 1000 MICROGRAM INJECTION, Q2WEEKS
  18. VITAMIN D [Concomitant]
     Active Substance: VITAMIN D NOS
     Dosage: 5000 MICROGRAM 1 DROP 3 TIMES/WEEK
  19. LEUCOVORIN. [Concomitant]
     Active Substance: LEUCOVORIN
     Dosage: 5 MG DROPS
     Route: 048
  20. INFLECTRA [Suspect]
     Active Substance: INFLIXIMAB-DYYB
     Indication: PSORIATIC ARTHROPATHY
     Dosage: 3 VIALS OR ROUND TO 250MG/ Q (EVERY) 0, 2, 6 AND THEN EVERY 8 WEEKS
     Route: 042
     Dates: start: 20170913, end: 20171012
  21. INFLECTRA [Suspect]
     Active Substance: INFLIXIMAB-DYYB
     Dosage: 3 VIALS OR ROUND TO 250MG / EVERY 6 WEEKS
     Route: 042
     Dates: start: 20171110, end: 20180202
  22. INFLECTRA [Suspect]
     Active Substance: INFLIXIMAB-DYYB
     Dosage: 300 MG
     Route: 042
     Dates: start: 20180413
  23. INFLECTRA [Suspect]
     Active Substance: INFLIXIMAB-DYYB
     Dosage: 250 MG, CYCLIC (EVERY 4 WEEKS)
     Route: 042
     Dates: start: 20180508
  24. INFLECTRA [Suspect]
     Active Substance: INFLIXIMAB-DYYB
     Dosage: 300 MG OF INFLECTRA INSTEAD OF PRESCRIBED 250 MG
     Route: 042
     Dates: start: 20180706
  25. INFLECTRA [Suspect]
     Active Substance: INFLIXIMAB-DYYB
     Dosage: 300 MG, EVERY 4 WEEKS
     Route: 042
     Dates: start: 20190430
  26. METHOTREXATE. [Concomitant]
     Active Substance: METHOTREXATE
     Dosage: 25 MG/ML, WEEKLY EVERY FRIDAY
     Dates: start: 201702

REACTIONS (8)
  - Poor venous access [Unknown]
  - Off label use [Unknown]
  - Pain [Unknown]
  - Rhinitis [Unknown]
  - Product use issue [Unknown]
  - Ear infection [Unknown]
  - Pharyngitis [Unknown]
  - Epiglottitis [Unknown]
